FAERS Safety Report 6383422-1 (Version None)
Quarter: 2009Q3

REPORT INFORMATION
  Report Type: 
  Country: None (occurrence: None)
  Receive Date: 20090929
  Receipt Date: 20090929
  Transmission Date: 20100115
  Serious: Yes (Other)
  Sender: FDA-Public Use
  Company Number: None

PATIENT
  Sex: Male
  Weight: 21.0923 kg

DRUGS (2)
  1. LEVOTHYROXINE SODIUM [Suspect]
     Dosage: 25 MCG DAILY
     Dates: start: 20090714, end: 20090911
  2. DAILY VITAMIN [Concomitant]

REACTIONS (3)
  - BLOOD THYROID STIMULATING HORMONE INCREASED [None]
  - PRODUCT TASTE ABNORMAL [None]
  - THYROXINE DECREASED [None]
